FAERS Safety Report 4512550-8 (Version None)
Quarter: 2004Q4

REPORT INFORMATION
  Report Type: 
  Country: None (occurrence: None)
  Receive Date: 20041124
  Receipt Date: 20041110
  Transmission Date: 20050328
  Serious: Yes (Death)
  Sender: FDA-Public Use
  Company Number: USA041081559

PATIENT
  Age: 86 Year
  Sex: Female
  Weight: 62 kg

DRUGS (7)
  1. CYMBALTA [Suspect]
     Indication: MAJOR DEPRESSION
     Dosage: 30 MG DAY
  2. PAXIL [Concomitant]
  3. LORAZEPAM [Concomitant]
  4. ADALAT CC (NIFEDIPINE PA) [Concomitant]
  5. FOSAMAX [Concomitant]
  6. LEVOXYL [Concomitant]
  7. ASPIRIN [Concomitant]

REACTIONS (1)
  - CARDIO-RESPIRATORY ARREST [None]
